FAERS Safety Report 5597153-9 (Version None)
Quarter: 2008Q1

REPORT INFORMATION
  Report Type: 
  Country: None (occurrence: None)
  Receive Date: 20080121
  Receipt Date: 20080111
  Transmission Date: 20080703
  Serious: Yes (Hospitalization)
  Sender: FDA-Public Use
  Company Number: PHRM2008FR00569

PATIENT
  Age: 37 Year
  Sex: Male

DRUGS (4)
  1. AREDIA [Suspect]
     Indication: OSTEOPOROSIS
     Route: 042
  2. ZOMETA [Suspect]
     Indication: OSTEOPOROSIS
     Route: 042
     Dates: end: 20070615
  3. ACTONEL [Suspect]
     Indication: OSTEOPOROSIS
     Route: 065
  4. PLAVIX [Concomitant]

REACTIONS (6)
  - DEBRIDEMENT [None]
  - OSTEITIS [None]
  - OSTEONECROSIS [None]
  - TOOTH DISORDER [None]
  - TOOTH EXTRACTION [None]
  - TOOTH INFECTION [None]
